FAERS Safety Report 10755366 (Version 1)
Quarter: 2015Q1

REPORT INFORMATION
  Report Type: Spontaneous
  Country: US (occurrence: None)
  Receive Date: 20150123
  Receipt Date: 20150123
  Transmission Date: 20150721
  Serious: No
  Sender: FDA-Public Use
  Company Number: 2014TUS008344

PATIENT
  Age: 29 Year
  Sex: Female
  Weight: 77.6 kg

DRUGS (2)
  1. ENTYVIO [Suspect]
     Active Substance: VEDOLIZUMAB
     Indication: CROHN^S DISEASE
     Dosage: 300 MG, WEEK ZERO
     Route: 042
     Dates: start: 20140826, end: 20140826
  2. CARBAMAZEPINE. [Concomitant]
     Active Substance: CARBAMAZEPINE

REACTIONS (6)
  - Headache [None]
  - Rhinorrhoea [None]
  - Nasopharyngitis [None]
  - Cough [None]
  - Back pain [None]
  - Dysphonia [None]
